FAERS Safety Report 7425666-3 (Version None)
Quarter: 2011Q2

REPORT INFORMATION
  Report Type: 
  Country: None (occurrence: None)
  Receive Date: 20110420
  Receipt Date: 20110411
  Transmission Date: 20111010
  Serious: Yes (Hospitalization)
  Sender: FDA-Public Use
  Company Number: US-ASTRAZENECA-2011SE20330

PATIENT
  Age: 59 Year
  Sex: Female

DRUGS (11)
  1. LISINOPRIL [Concomitant]
     Indication: HYPERTENSION
     Route: 048
  2. NORVASC [Concomitant]
     Indication: HYPERTENSION
  3. PLAVIX [Concomitant]
     Indication: CORONARY ARTERY DISEASE
  4. METHOTREXATE [Concomitant]
     Indication: RHEUMATOID ARTHRITIS
  5. HUMALOG [Concomitant]
     Indication: DIABETES MELLITUS
  6. CYMBALTA [Concomitant]
  7. ASPIRIN [Concomitant]
     Indication: CORONARY ARTERY DISEASE
  8. NEXIUM [Suspect]
     Indication: GASTROOESOPHAGEAL REFLUX DISEASE
     Route: 048
     Dates: start: 20010101
  9. CRESTOR [Concomitant]
     Indication: HYPERCHOLESTEROLAEMIA
     Route: 048
  10. NORVASC [Concomitant]
     Indication: CARDIAC DISORDER
  11. XANAX [Concomitant]

REACTIONS (6)
  - STENT PLACEMENT [None]
  - MYOCARDIAL INFARCTION [None]
  - CORONARY ARTERY DISEASE [None]
  - CARDIAC OPERATION [None]
  - ANGIOPLASTY [None]
  - RHEUMATOID ARTHRITIS [None]
